FAERS Safety Report 22189523 (Version 4)
Quarter: 2024Q1

REPORT INFORMATION
  Report Type: Report from Study
  Country: CL (occurrence: CL)
  Receive Date: 20230410
  Receipt Date: 20240311
  Transmission Date: 20240410
  Serious: Yes (Hospitalization, Other)
  Sender: FDA-Public Use
  Company Number: CL-BEIGENE, LTD-BGN-2023-000463

PATIENT

DRUGS (3)
  1. BRUKINSA [Suspect]
     Active Substance: ZANUBRUTINIB
     Indication: Mantle cell lymphoma
     Dosage: 160 MILLIGRAM, Q12H
     Route: 048
     Dates: start: 20221128
  2. BRUKINSA [Suspect]
     Active Substance: ZANUBRUTINIB
     Dosage: 80 MILLIGRAM, Q12H
     Route: 048
     Dates: start: 20221128
  3. BRUKINSA [Suspect]
     Active Substance: ZANUBRUTINIB
     Dosage: 160 MILLIGRAM, Q12H
     Route: 048
     Dates: start: 20221128

REACTIONS (13)
  - COVID-19 [Unknown]
  - Transient ischaemic attack [Unknown]
  - Urinary tract infection [Not Recovered/Not Resolved]
  - Vomiting [Unknown]
  - Decubitus ulcer [Not Recovered/Not Resolved]
  - Movement disorder [Not Recovered/Not Resolved]
  - Visual impairment [Not Recovered/Not Resolved]
  - Pyrexia [Unknown]
  - Pain [Not Recovered/Not Resolved]
  - Pain of skin [Not Recovered/Not Resolved]
  - Peripheral swelling [Unknown]
  - Mood altered [Not Recovered/Not Resolved]
  - Prescribed underdose [Unknown]

NARRATIVE: CASE EVENT DATE: 20230301
